FAERS Safety Report 4881305-7 (Version None)
Quarter: 2006Q1

REPORT INFORMATION
  Report Type: 
  Country: None (occurrence: None)
  Receive Date: 20060111
  Receipt Date: 20060111
  Transmission Date: 20060701
  Serious: No
  Sender: FDA-Public Use
  Company Number: None

PATIENT
  Age: 12 Year
  Sex: Female
  Weight: 54.4316 kg

DRUGS (4)
  1. LAMICTAL [Suspect]
     Indication: BIPOLAR DISORDER
     Dosage: 100 AM 125 PM ORAL
     Route: 048
  2. CONCERIA [Concomitant]
  3. AMLIFY [Concomitant]
  4. ZOLOFT [Concomitant]

REACTIONS (4)
  - CRYING [None]
  - HALLUCINATION, AUDITORY [None]
  - HALLUCINATION, VISUAL [None]
  - SUICIDAL IDEATION [None]
